FAERS Safety Report 15056537 (Version 1)
Quarter: 2018Q2

REPORT INFORMATION
  Report Type: Spontaneous
  Country: US (occurrence: US)
  Receive Date: 20180623
  Receipt Date: 20180623
  Transmission Date: 20180711
  Serious: No
  Sender: FDA-Public Use
  Company Number: PHEH2018US024670

PATIENT
  Age: 54 Year

DRUGS (2)
  1. MEKINIST [Suspect]
     Active Substance: TRAMETINIB DIMETHYL SULFOXIDE
     Indication: PROSTATE CANCER
     Dosage: 2 MG, QD
     Route: 048
     Dates: start: 20180302
  2. TAFINLAR [Suspect]
     Active Substance: DABRAFENIB MESYLATE
     Indication: PROSTATIC SPECIFIC ANTIGEN
     Route: 065

REACTIONS (2)
  - Product use in unapproved indication [Unknown]
  - Prostatic specific antigen decreased [Recovering/Resolving]

NARRATIVE: CASE EVENT DATE: 20180524
